FAERS Safety Report 23834876 (Version 4)
Quarter: 2024Q3

REPORT INFORMATION
  Report Type: Spontaneous
  Country: FR (occurrence: FR)
  Receive Date: 20240509
  Receipt Date: 20240904
  Transmission Date: 20241017
  Serious: Yes (Hospitalization, Other)
  Sender: ROCHE
  Company Number: FR-ROCHE-3556771

PATIENT
  Age: 75 Year
  Sex: Female

DRUGS (3)
  1. VABYSMO [Suspect]
     Active Substance: FARICIMAB\FARICIMAB-SVOA
     Indication: Diabetic retinal oedema
     Dosage: 2ND IVT- 20-FEB-2024
     Route: 065
     Dates: start: 20240122, end: 20240318
  2. PERINDOPRIL ARGININE [Concomitant]
     Active Substance: PERINDOPRIL ARGININE
  3. LEVOTHYROXINE [Concomitant]
     Active Substance: LEVOTHYROXINE\LEVOTHYROXINE SODIUM

REACTIONS (4)
  - Cyclitic membrane [Recovered/Resolved]
  - Iridocyclitis [Recovered/Resolved]
  - Endophthalmitis [Recovered/Resolved with Sequelae]
  - Iris adhesions [Recovered/Resolved]

NARRATIVE: CASE EVENT DATE: 20240318
